FAERS Safety Report 6188214-4 (Version None)
Quarter: 2009Q2

REPORT INFORMATION
  Report Type: 
  Country: None (occurrence: None)
  Receive Date: 20090513
  Receipt Date: 20090501
  Transmission Date: 20091009
  Serious: Yes (Other)
  Sender: FDA-Public Use
  Company Number: JP-JNJFOC-20090406792

PATIENT
  Sex: Female
  Weight: 55 kg

DRUGS (17)
  1. GOLIMUMAB [Suspect]
     Route: 058
  2. GOLIMUMAB [Suspect]
     Route: 058
  3. GOLIMUMAB [Suspect]
     Route: 058
  4. GOLIMUMAB [Suspect]
     Route: 058
  5. GOLIMUMAB [Suspect]
     Route: 058
  6. GOLIMUMAB [Suspect]
     Route: 058
  7. GOLIMUMAB [Suspect]
     Route: 058
  8. GOLIMUMAB [Suspect]
     Indication: RHEUMATOID ARTHRITIS
     Route: 058
  9. LETRAC [Suspect]
     Indication: RHEUMATOID ARTHRITIS
     Route: 048
  10. METHOTREXATE [Concomitant]
     Indication: RHEUMATOID ARTHRITIS
     Route: 048
  11. FOLIAMIN [Concomitant]
     Indication: PROPHYLAXIS
     Route: 048
  12. PREDNISOLONE [Concomitant]
     Indication: RHEUMATOID ARTHRITIS
     Route: 048
  13. ZANTAC [Concomitant]
     Indication: PROPHYLAXIS AGAINST GASTROINTESTINAL ULCER
     Route: 048
  14. YAKUBAN [Concomitant]
     Indication: RHEUMATOID ARTHRITIS
     Route: 003
  15. SENNA [Concomitant]
     Indication: CONSTIPATION
     Route: 048
  16. FERO-GRADUMET [Concomitant]
     Route: 048
  17. PATANOL [Concomitant]
     Indication: SEASONAL ALLERGY
     Route: 031

REACTIONS (1)
  - LARGE INTESTINE CARCINOMA [None]
